FAERS Safety Report 4817108-9 (Version None)
Quarter: 2005Q4

REPORT INFORMATION
  Report Type: 
  Country: None (occurrence: None)
  Receive Date: 20051101
  Receipt Date: 20051020
  Transmission Date: 20060501
  Serious: Yes (Life-Threatening)
  Sender: FDA-Public Use
  Company Number: GB-NOVOPROD-247942

PATIENT
  Age: 15 Month
  Sex: Female
  Weight: 14 kg

DRUGS (4)
  1. NOVORAPID [Suspect]
     Indication: DIABETES MELLITUS
     Dosage: 5-15 IU, QD
     Route: 058
     Dates: start: 20050613
  2. LEVEMIR [Suspect]
     Indication: DIABETES MELLITUS
     Dosage: 7 IU, QD
     Route: 058
     Dates: start: 20050613
  3. LEVEMIR [Suspect]
     Dosage: 6.5 IU, QD
  4. IBUPROFEN [Concomitant]
     Dates: start: 20051013

REACTIONS (2)
  - CONVULSION [None]
  - HYPOGLYCAEMIA [None]
